FAERS Safety Report 5856631-5 (Version None)
Quarter: 2008Q3

REPORT INFORMATION
  Report Type: 
  Country: None (occurrence: None)
  Receive Date: 20080822
  Receipt Date: 20080822
  Transmission Date: 20090109
  Serious: Yes (Life-Threatening, Hospitalization)
  Sender: FDA-Public Use
  Company Number: None

PATIENT
  Age: 38 Year
  Sex: Male
  Weight: 74.8435 kg

DRUGS (1)
  1. CLONIDINE [Suspect]
     Indication: HYPERADRENALISM
     Dosage: HALF PILL TWICE DAILY PO, 1 DOSE AND DISCONTINUED
     Route: 048
     Dates: start: 20080806, end: 20080806

REACTIONS (6)
  - ANXIETY [None]
  - CHEST DISCOMFORT [None]
  - CHEST PAIN [None]
  - CONVULSION [None]
  - PANIC ATTACK [None]
  - TREMOR [None]
